FAERS Safety Report 4727162-0 (Version None)
Quarter: 2005Q3

REPORT INFORMATION
  Report Type: 
  Country: None (occurrence: None)
  Receive Date: 20050726
  Receipt Date: 20050726
  Transmission Date: 20060218
  Serious: Yes (Other)
  Sender: FDA-Public Use
  Company Number: None

PATIENT
  Age: 84 Year
  Sex: Male
  Weight: 108 kg

DRUGS (4)
  1. TERAZOSIN [Suspect]
  2. BETAMETHASONE DIPROPIONATE [Concomitant]
  3. FLUNISOLIDE [Concomitant]
  4. IRBESARTAN [Concomitant]

REACTIONS (1)
  - DIZZINESS [None]
